FAERS Safety Report 8309451-6 (Version None)
Quarter: 2012Q2

REPORT INFORMATION
  Report Type: 
  Country: None (occurrence: None)
  Receive Date: 20120424
  Receipt Date: 20120424
  Transmission Date: 20120825
  Serious: Yes (Hospitalization)
  Sender: FDA-Public Use
  Company Number: None

PATIENT
  Sex: Male
  Weight: 101 kg

DRUGS (2)
  1. CYTARABINE [Suspect]
     Dosage: 220 MG
     Dates: end: 20120409
  2. IDARUBICIN HCL [Suspect]
     Dosage: 26 MG
     Dates: end: 20120405

REACTIONS (9)
  - FATIGUE [None]
  - TROPONIN INCREASED [None]
  - DYSPNOEA [None]
  - CHEST DISCOMFORT [None]
  - HYPOXIA [None]
  - ASTHENIA [None]
  - UNEVALUABLE EVENT [None]
  - COUGH [None]
  - FLUID OVERLOAD [None]
